FAERS Safety Report 6556845-5 (Version None)
Quarter: 2010Q1

REPORT INFORMATION
  Report Type: 
  Country: None (occurrence: None)
  Receive Date: 20100128
  Receipt Date: 20100122
  Transmission Date: 20100710
  Serious: Yes (Life-Threatening, Hospitalization, Other)
  Sender: FDA-Public Use
  Company Number: PHHY2009JP58785

PATIENT
  Age: 60 Year
  Sex: Male

DRUGS (2)
  1. DIOVAN [Suspect]
     Indication: HYPERTENSION
     Dosage: UNK
     Route: 048
  2. LISINOPRIL [Suspect]
     Route: 048

REACTIONS (14)
  - ANGIOEDEMA [None]
  - DYSKINESIA [None]
  - DYSPNOEA [None]
  - LARYNGEAL OEDEMA [None]
  - LARYNGEAL OPERATION [None]
  - LIP OEDEMA [None]
  - LOCAL SWELLING [None]
  - OEDEMA PERIPHERAL [None]
  - PHARYNGEAL OEDEMA [None]
  - RESPIRATORY ARREST [None]
  - SWELLING [None]
  - SWOLLEN TONGUE [None]
  - TRACHEOSTOMY [None]
  - UPPER RESPIRATORY TRACT INFLAMMATION [None]
